FAERS Safety Report 11133900 (Version 1)
Quarter: 2015Q2

REPORT INFORMATION
  Report Type: Spontaneous
  Country: US (occurrence: US)
  Receive Date: 20150524
  Receipt Date: 20150524
  Transmission Date: 20150821
  Serious: No
  Sender: FDA-Public Use
  Company Number: US-JNJFOC-20140925450

PATIENT
  Sex: Male

DRUGS (1)
  1. INVOKANA [Suspect]
     Active Substance: CANAGLIFLOZIN
     Indication: PRODUCT USED FOR UNKNOWN INDICATION
     Route: 065

REACTIONS (8)
  - Balanoposthitis [Unknown]
  - Somnolence [Unknown]
  - Headache [Unknown]
  - Dysuria [Unknown]
  - Fungal infection [Unknown]
  - Pruritus [Unknown]
  - Asthenia [Unknown]
  - Dizziness [Unknown]
